FAERS Safety Report 8384132-1 (Version None)
Quarter: 2012Q2

REPORT INFORMATION
  Report Type: 
  Country: None (occurrence: None)
  Receive Date: 20120524
  Receipt Date: 20120518
  Transmission Date: 20120825
  Serious: Yes (Other)
  Sender: FDA-Public Use
  Company Number: US-ROCHE-1070383

PATIENT
  Sex: Female

DRUGS (8)
  1. ZYRTEC [Concomitant]
  2. SINGULAIR [Concomitant]
  3. RANITIDINE [Concomitant]
  4. XOLAIR [Suspect]
     Indication: PRODUCT USED FOR UNKNOWN INDICATION
     Route: 058
     Dates: start: 20060322, end: 20060405
  5. ASTELIN [Concomitant]
  6. BIAXIN (UNITED STATES) [Concomitant]
  7. ADVAIR DISKUS 100/50 [Concomitant]
  8. HYDROXYZINE [Concomitant]

REACTIONS (1)
  - DYSPNOEA [None]
